FAERS Safety Report 24822145 (Version 2)
Quarter: 2025Q1

REPORT INFORMATION
  Report Type: Spontaneous
  Country: US (occurrence: US)
  Receive Date: 20250108
  Receipt Date: 20250210
  Transmission Date: 20250409
  Serious: Yes (Other)
  Sender: PFIZER
  Company Number: US-PFIZER INC-202500000966

PATIENT
  Age: 73 Year
  Sex: Male

DRUGS (14)
  1. INLYTA [Suspect]
     Active Substance: AXITINIB
     Route: 048
     Dates: start: 2023, end: 202409
  2. INLYTA [Suspect]
     Active Substance: AXITINIB
     Dosage: 2 MG, 2X/DAY (1 MG X 2 TABLETS EVERY 12 HOURS)
     Route: 048
     Dates: start: 2024
  3. INLYTA [Suspect]
     Active Substance: AXITINIB
     Dosage: 1MG TABLET BY MOUTH EVERY 12 HOURS
     Route: 048
     Dates: start: 202501
  4. VITAMIN D3 [Concomitant]
     Active Substance: CHOLECALCIFEROL
  5. FISH OIL [Concomitant]
     Active Substance: FISH OIL
  6. KETOCONAZOLE [Concomitant]
     Active Substance: KETOCONAZOLE
  7. TYLENOL [Concomitant]
     Active Substance: ACETAMINOPHEN
  8. ALLOPURINOL [Concomitant]
     Active Substance: ALLOPURINOL
  9. AMLODIPINE BESYLATE [Concomitant]
     Active Substance: AMLODIPINE BESYLATE
  10. GABAPENTIN [Concomitant]
     Active Substance: GABAPENTIN
  11. METOPROLOL SUCCINATE [Concomitant]
     Active Substance: METOPROLOL SUCCINATE
  12. ATORVASTATIN CALCIUM [Concomitant]
     Active Substance: ATORVASTATIN CALCIUM
  13. VOTRIENT [Concomitant]
     Active Substance: PAZOPANIB HYDROCHLORIDE
  14. KEYTRUDA [Concomitant]
     Active Substance: PEMBROLIZUMAB
     Dates: start: 20250203

REACTIONS (9)
  - Pneumonia [Unknown]
  - Osteonecrosis of jaw [Unknown]
  - Mouth ulceration [Recovering/Resolving]
  - Oral mucosal blistering [Recovering/Resolving]
  - Jaw disorder [Not Recovered/Not Resolved]
  - Palmar-plantar erythrodysaesthesia syndrome [Recovering/Resolving]
  - Hepatic enzyme abnormal [Unknown]
  - Dry skin [Unknown]
  - Fatigue [Unknown]

NARRATIVE: CASE EVENT DATE: 20240101
